FAERS Safety Report 15849381 (Version 1)
Quarter: 2019Q1

REPORT INFORMATION
  Report Type: Spontaneous
  Country: ES (occurrence: ES)
  Receive Date: 20190121
  Receipt Date: 20190121
  Transmission Date: 20190417
  Serious: Yes (Death, Hospitalization)
  Sender: FDA-Public Use
  Company Number: ES-SA-2019SA013094

PATIENT
  Age: 13 Year
  Sex: Male
  Weight: 51 kg

DRUGS (1)
  1. TRIAMCINOLONE ACETONIDE. [Suspect]
     Active Substance: TRIAMCINOLONE ACETONIDE
     Dosage: UNK UNK, UNK HIGH DOSE
     Route: 048
     Dates: start: 20170117, end: 20170327

REACTIONS (1)
  - Pancreatitis necrotising [Fatal]

NARRATIVE: CASE EVENT DATE: 20170327
